FAERS Safety Report 7351402-5 (Version None)
Quarter: 2011Q1

REPORT INFORMATION
  Report Type: 
  Country: None (occurrence: None)
  Receive Date: 20110304
  Receipt Date: 20110221
  Transmission Date: 20110831
  Serious: Yes (Other)
  Sender: FDA-Public Use
  Company Number: 2011MA000277

PATIENT
  Age: 38 Year
  Sex: Female

DRUGS (2)
  1. AZITHROMYCIN [Concomitant]
  2. MIRTAZAPINE [Suspect]
     Indication: ANTIDEPRESSANT THERAPY
     Dosage: 30 MG

REACTIONS (13)
  - EATING DISORDER [None]
  - SYNCOPE [None]
  - GASTROINTESTINAL DISORDER [None]
  - HEART RATE INCREASED [None]
  - WEIGHT INCREASED [None]
  - DYSPNOEA [None]
  - THINKING ABNORMAL [None]
  - ABDOMINAL PAIN UPPER [None]
  - NAUSEA [None]
  - CRYING [None]
  - FATIGUE [None]
  - INSOMNIA [None]
  - SUICIDAL IDEATION [None]
